FAERS Safety Report 9889310 (Version 3)
Quarter: 2014Q4

REPORT INFORMATION
  Report Type: Spontaneous
  Country: US (occurrence: US)
  Receive Date: 20140211
  Receipt Date: 20141014
  Transmission Date: 20150529
  Serious: Yes (Hospitalization, Other)
  Sender: FDA-Public Use
  Company Number: US-009507513-1402USA004995

PATIENT
  Sex: Female

DRUGS (1)
  1. NUVARING [Suspect]
     Active Substance: ETHINYL ESTRADIOL\ETONOGESTREL
     Indication: CONTRACEPTION
     Dosage: UNK
     Route: 067
     Dates: start: 201105, end: 201202

REACTIONS (16)
  - Fasciotomy [Unknown]
  - Fibromyalgia [Unknown]
  - Embolism [Unknown]
  - Debridement [Unknown]
  - Debridement [Unknown]
  - Skin graft [Recovering/Resolving]
  - Packed red blood cell transfusion [Unknown]
  - Pain [Unknown]
  - Crohn^s disease [Unknown]
  - Peripheral ischaemia [Unknown]
  - Iron deficiency anaemia [Unknown]
  - Anaemia [Unknown]
  - Arterial stent insertion [Unknown]
  - Gastrointestinal haemorrhage [Unknown]
  - Thrombectomy [Unknown]
  - Toxicity to various agents [Unknown]

NARRATIVE: CASE EVENT DATE: 20120224
